FAERS Safety Report 18777051 (Version 3)
Quarter: 2021Q1

REPORT INFORMATION
  Report Type: Report from Study
  Country: AT (occurrence: AT)
  Receive Date: 20210123
  Receipt Date: 20210318
  Transmission Date: 20210419
  Serious: Yes (Death, Other)
  Sender: FDA-Public Use
  Company Number: AT-TAKEDA-2021TUS002525

PATIENT
  Age: 93 Year
  Sex: Female
  Weight: 58 kg

DRUGS (7)
  1. COAGULATION FACTOR VIII (PORCINE, RECOMBINANT) [Suspect]
     Active Substance: ANTIHEMOPHILIC FACTOR PORCINE, B-DOMAIN TRUNCATED RECOMBINANT
     Indication: ACQUIRED HAEMOPHILIA
     Dosage: UNK
     Route: 065
     Dates: start: 20160212, end: 20160214
  2. COAGULATION FACTOR VIII (PORCINE, RECOMBINANT) [Suspect]
     Active Substance: ANTIHEMOPHILIC FACTOR PORCINE, B-DOMAIN TRUNCATED RECOMBINANT
     Dosage: 11000 INTERNATIONAL UNIT
     Route: 042
     Dates: start: 20160212, end: 20160214
  3. BERIATE [Concomitant]
     Active Substance: ANTIHEMOPHILIC FACTOR HUMAN
     Indication: HAEMORRHAGE
     Dosage: UNK
     Dates: start: 20210214, end: 20210215
  4. COAGULATION FACTOR VIII (PORCINE, RECOMBINANT) [Suspect]
     Active Substance: ANTIHEMOPHILIC FACTOR PORCINE, B-DOMAIN TRUNCATED RECOMBINANT
     Indication: ACQUIRED HAEMOPHILIA
     Dosage: UNK
     Route: 065
     Dates: start: 20160212, end: 20160214
  5. COAGULATION FACTOR VIII (PORCINE, RECOMBINANT) [Suspect]
     Active Substance: ANTIHEMOPHILIC FACTOR PORCINE, B-DOMAIN TRUNCATED RECOMBINANT
     Dosage: 11000 INTERNATIONAL UNIT
     Route: 042
     Dates: start: 20160212, end: 20160214
  6. PREDNISONE. [Concomitant]
     Active Substance: PREDNISONE
     Indication: IMMUNOSUPPRESSION
     Dosage: UNK
     Route: 065
     Dates: start: 20210121, end: 20210215
  7. SULTAMICILLIN [Concomitant]
     Active Substance: SULTAMICILLIN
     Indication: URINARY TRACT INFECTION
     Dosage: UNK
     Dates: start: 20210210, end: 20210215

REACTIONS (1)
  - Death [Fatal]

NARRATIVE: CASE EVENT DATE: 20160216
